FAERS Safety Report 9837334 (Version 1)
Quarter: 2014Q1

REPORT INFORMATION
  Report Type: Spontaneous
  Country: US (occurrence: None)
  Receive Date: 20140117
  Receipt Date: 20140117
  Transmission Date: 20141002
  Serious: Yes (Other)
  Sender: FDA-Public Use
  Company Number: None

PATIENT
  Age: 44 Year
  Sex: Female
  Weight: 82.56 kg

DRUGS (3)
  1. DULOXETINE [Suspect]
     Indication: DEPRESSION
     Dosage: 1 CAP  ONCE DAILY  TAKEN BY MOUTH
     Route: 048
     Dates: start: 20131228, end: 20140109
  2. DULOXETINE [Suspect]
     Indication: FIBROMYALGIA
     Dosage: 1 CAP  ONCE DAILY  TAKEN BY MOUTH
     Route: 048
     Dates: start: 20131228, end: 20140109
  3. DULOXETINE [Suspect]
     Indication: OSTEOARTHRITIS
     Dosage: 1 CAP  ONCE DAILY  TAKEN BY MOUTH
     Route: 048
     Dates: start: 20131228, end: 20140109

REACTIONS (11)
  - Cognitive disorder [None]
  - Tremor [None]
  - Tremor [None]
  - Pyrexia [None]
  - Dizziness [None]
  - Dizziness [None]
  - Hypotension [None]
  - Decreased appetite [None]
  - Nausea [None]
  - Serotonin syndrome [None]
  - Product substitution issue [None]
